FAERS Safety Report 9239902 (Version 2)
Quarter: 2013Q2

REPORT INFORMATION
  Report Type: Spontaneous
  Country: JP (occurrence: JP)
  Receive Date: 20130418
  Receipt Date: 20130617
  Transmission Date: 20140414
  Serious: Yes (Hospitalization)
  Sender: FDA-Public Use
  Company Number: JP-AMGEN-JPNSP2013025443

PATIENT
  Age: 56 Year
  Sex: Male
  Weight: 72 kg

DRUGS (14)
  1. RANMARK [Suspect]
     Indication: BONE LESION
     Dosage: 120 MG, UNK
     Route: 058
     Dates: start: 20130318, end: 20130318
  2. RANMARK [Suspect]
     Route: 058
     Dates: start: 20130318, end: 20130318
  3. BICALUTAMIDE [Concomitant]
     Indication: PROSTATE CANCER
     Route: 048
     Dates: start: 20130305
  4. LOXOPROFEN [Concomitant]
     Indication: BONE PAIN
     Route: 048
     Dates: start: 20130219, end: 20130416
  5. REBAMIPIDE [Concomitant]
     Indication: BONE PAIN
     Route: 048
     Dates: start: 20130219, end: 20130416
  6. MICARDIS [Concomitant]
     Indication: HYPERTENSION
     Route: 048
     Dates: start: 20130131
  7. URIEF [Concomitant]
     Indication: BENIGN PROSTATIC HYPERPLASIA
     Route: 048
     Dates: start: 20130115
  8. LEUPLIN [Concomitant]
     Indication: PROSTATE CANCER
     Route: 058
     Dates: start: 20130312, end: 20130312
  9. CALCIUM LACTATE [Concomitant]
     Route: 048
     Dates: start: 20130318, end: 20130320
  10. CALCIUM LACTATE [Concomitant]
     Route: 048
     Dates: start: 20130321, end: 20130415
  11. CALCIUM LACTATE [Concomitant]
     Route: 048
     Dates: start: 20130416, end: 20130423
  12. ONEALFA [Concomitant]
     Route: 048
     Dates: start: 20130318, end: 20130320
  13. ONEALFA [Concomitant]
     Route: 048
     Dates: start: 20130321, end: 20130415
  14. ONEALFA [Concomitant]
     Route: 048
     Dates: start: 20130416, end: 20130423

REACTIONS (1)
  - Hypocalcaemia [Recovered/Resolved]
